FAERS Safety Report 5093458-9 (Version None)
Quarter: 2006Q3

REPORT INFORMATION
  Report Type: 
  Country: None (occurrence: None)
  Receive Date: 20060828
  Receipt Date: 20060810
  Transmission Date: 20061208
  Serious: Yes (Life-Threatening, Hospitalization)
  Sender: FDA-Public Use
  Company Number: S06-FRA-03362-02

PATIENT
  Age: 1 Hour
  Sex: Female
  Weight: 1.5 kg

DRUGS (5)
  1. CITALOPRAM HYDROBROMIDE [Suspect]
     Dates: end: 20060725
  2. LIORESAL [Suspect]
     Dates: end: 20060725
  3. SOLU-MEDROL [Suspect]
     Dates: end: 20060725
  4. IMOVANE (ZOPICLONE) [Suspect]
     Dates: end: 20060725
  5. REBIF [Suspect]
     Dates: end: 20060725

REACTIONS (10)
  - AGITATION NEONATAL [None]
  - APGAR SCORE LOW [None]
  - BRADYCARDIA NEONATAL [None]
  - CAESAREAN SECTION [None]
  - DRUG EXPOSURE DURING PREGNANCY [None]
  - FOETAL CARDIAC DISORDER [None]
  - GROWTH RETARDATION [None]
  - NEONATAL ASPHYXIA [None]
  - PREGNANCY [None]
  - PREMATURE BABY [None]
